FAERS Safety Report 25698373 (Version 1)
Quarter: 2025Q3

REPORT INFORMATION
  Report Type: Report from Study
  Country: CA (occurrence: CA)
  Receive Date: 20250819
  Receipt Date: 20250819
  Transmission Date: 20251021
  Serious: Yes (Other)
  Sender: AMGEN
  Company Number: CA-AMGEN-CANSL2025100689

PATIENT
  Age: 69 Year
  Sex: Female

DRUGS (1)
  1. WEZLANA [Suspect]
     Active Substance: USTEKINUMAB-AUUB
     Indication: Crohn^s disease
     Dosage: 90 MILLIGRAM, Q4WK
     Route: 065
     Dates: start: 20250421

REACTIONS (7)
  - Adverse reaction [Unknown]
  - Fatigue [Unknown]
  - Headache [Unknown]
  - Pruritus [Unknown]
  - Palpitations [Unknown]
  - Secretion discharge [Unknown]
  - Off label use [Unknown]

NARRATIVE: CASE EVENT DATE: 20250421
